FAERS Safety Report 6420821-3 (Version None)
Quarter: 2009Q4

REPORT INFORMATION
  Report Type: 
  Country: None (occurrence: None)
  Receive Date: 20091030
  Receipt Date: 20091023
  Transmission Date: 20100525
  Serious: Yes (Other)
  Sender: FDA-Public Use
  Company Number: US-SANOFI-SYNTHELABO-A03200904983

PATIENT
  Sex: Female

DRUGS (1)
  1. AMBIEN [Suspect]
     Indication: INSOMNIA
     Dosage: UNK
     Route: 048

REACTIONS (4)
  - ABNORMAL BEHAVIOUR [None]
  - SOMNAMBULISM [None]
  - SUTURE RUPTURE [None]
  - TENDON INJURY [None]
